FAERS Safety Report 8305854 (Version 2)
Quarter: 2013Q3

REPORT INFORMATION
  Report Type: Report from Study
  Country: MX (occurrence: MX)
  Receive Date: 20111221
  Receipt Date: 20130701
  Transmission Date: 20140515
  Serious: Yes (Other)
  Sender: FDA-Public Use
  Company Number: PHHY2011MX109507

PATIENT
  Sex: Female

DRUGS (8)
  1. ONBREZ [Suspect]
     Indication: CHRONIC OBSTRUCTIVE PULMONARY DISEASE
     Dosage: 300 UG, QD
     Dates: start: 201010
  2. ENALAPRIL [Concomitant]
     Indication: HYPERTENSION
     Dosage: 1 DF, QD
     Dates: start: 198812, end: 20130616
  3. GLIBENCLAMIDE [Concomitant]
     Indication: BLOOD GLUCOSE
     Dosage: 1 DF, QD
     Dates: start: 198812, end: 20130616
  4. GLIBENCLAMIDE [Concomitant]
     Indication: DIABETES MELLITUS
  5. GALVUS MET [Concomitant]
     Indication: DIABETES MELLITUS
     Dosage: UNK
     Route: 048
     Dates: start: 20130616
  6. LOSARTAN [Concomitant]
     Indication: HYPERTENSION
     Dosage: 2 DF, QD
     Route: 048
     Dates: start: 20130616, end: 20130619
  7. LOSARTAN [Concomitant]
     Dosage: 1 DF, QD
     Route: 048
     Dates: start: 20130619
  8. MIFLONIDE [Concomitant]
     Indication: CHRONIC OBSTRUCTIVE PULMONARY DISEASE
     Dosage: 200 UG, QD
     Dates: start: 201010

REACTIONS (1)
  - Fall [Recovered/Resolved]
